FAERS Safety Report 9469948 (Version 3)
Quarter: 2013Q4

REPORT INFORMATION
  Report Type: Spontaneous
  Country: JP (occurrence: JP)
  Receive Date: 20130822
  Receipt Date: 20131104
  Transmission Date: 20140711
  Serious: Yes (Death, Hospitalization)
  Sender: FDA-Public Use
  Company Number: PHHY2013JP083026

PATIENT
  Sex: Female

DRUGS (18)
  1. VOLTAREN [Suspect]
     Indication: RHEUMATOID ARTHRITIS
     Route: 048
  2. ACECOL [Concomitant]
     Route: 048
  3. BLOPRESS [Concomitant]
     Route: 048
  4. DIFLUCAN [Concomitant]
  5. AMLODIN [Concomitant]
  6. AZULFIDINE EN [Concomitant]
  7. PREDONINE [Concomitant]
  8. ONEALFA [Concomitant]
  9. METHYCOBAL [Concomitant]
  10. NESINA [Concomitant]
  11. LYRICA [Concomitant]
  12. ACTONEL [Concomitant]
  13. VESICARE [Concomitant]
  14. OMEPRAL [Concomitant]
  15. FUROSEMIDE [Concomitant]
     Dosage: UNK
  16. PROMAC                                  /JPN/ [Concomitant]
  17. BAKTAR [Concomitant]
  18. MOHRUS [Concomitant]

REACTIONS (14)
  - Hodgkin^s disease [Fatal]
  - Diverticulum intestinal haemorrhagic [Unknown]
  - Faeces discoloured [Unknown]
  - C-reactive protein increased [Unknown]
  - Haemangioma [Unknown]
  - Respiratory disorder [Unknown]
  - Small intestinal haemorrhage [Unknown]
  - Anaemia [Unknown]
  - Gastrointestinal haemorrhage [Unknown]
  - Melaena [Unknown]
  - Gastroduodenal ulcer [Unknown]
  - Small intestine ulcer [Unknown]
  - Jejunal ulcer [Unknown]
  - Pneumonia [Unknown]
